FAERS Safety Report 19348056 (Version 1)
Quarter: 2021Q2

REPORT INFORMATION
  Report Type: Spontaneous
  Country: US (occurrence: US)
  Receive Date: 20210531
  Receipt Date: 20210531
  Transmission Date: 20210717
  Serious: Yes (Hospitalization)
  Sender: FDA-Public Use
  Company Number: None

PATIENT
  Age: 56 Year
  Sex: Female
  Weight: 62 kg

DRUGS (5)
  1. LISINOPRIL. [Concomitant]
     Active Substance: LISINOPRIL
     Dates: start: 20210215
  2. ASPIRIN EC 81 MG [Concomitant]
     Dates: start: 20200213
  3. BAMLANIVIMAB. [Suspect]
     Active Substance: BAMLANIVIMAB
     Indication: COVID-19
     Dosage: ?          OTHER FREQUENCY:ONCE;?
     Route: 042
     Dates: start: 20210512, end: 20210512
  4. ETESEVIMAB. [Suspect]
     Active Substance: ETESEVIMAB
     Indication: COVID-19
     Dosage: ?          OTHER FREQUENCY:ONCE;?
     Route: 042
     Dates: start: 20210512, end: 20210512
  5. ATORVASTATIN 20MG [Concomitant]
     Active Substance: ATORVASTATIN
     Dates: start: 20210419

REACTIONS (4)
  - Diarrhoea [None]
  - Sinus tachycardia [None]
  - COVID-19 pneumonia [None]
  - Acute respiratory failure [None]

NARRATIVE: CASE EVENT DATE: 20210513
